FAERS Safety Report 8066629-7 (Version None)
Quarter: 2012Q1

REPORT INFORMATION
  Report Type: 
  Country: None (occurrence: None)
  Receive Date: 20120124
  Receipt Date: 20120119
  Transmission Date: 20120608
  Serious: Yes (Other)
  Sender: FDA-Public Use
  Company Number: PHHY2008BR40582

PATIENT
  Age: 74 Year
  Sex: Female

DRUGS (4)
  1. EXFORGE [Suspect]
     Indication: HYPERTENSION
     Dosage: 1 DF, 80/5 MG,  DAILY
     Route: 048
  2. CLONAZEPAM [Concomitant]
     Indication: SOMNOLENCE
     Dosage: 1 DF, QD
     Route: 048
     Dates: start: 20080101
  3. OXIGEN [Concomitant]
     Indication: CARDIOVASCULAR DISORDER
     Dosage: 2 DF DAILY
     Route: 048
  4. CLOPIDOGREL BISULFATE [Concomitant]
     Indication: ANTICOAGULANT THERAPY
     Dosage: 1 DF DAILY
     Route: 048

REACTIONS (2)
  - OSTEOARTHRITIS [None]
  - CATARACT [None]
